FAERS Safety Report 18760171 (Version 1)
Quarter: 2021Q1

REPORT INFORMATION
  Report Type: Spontaneous
  Country: US (occurrence: US)
  Receive Date: 20210119
  Receipt Date: 20210119
  Transmission Date: 20210419
  Serious: Yes (Other)
  Sender: FDA-Public Use
  Company Number: US-TEVA-2021-US-1869890

PATIENT
  Age: 43 Year
  Sex: Male

DRUGS (8)
  1. PREDNISONE. [Suspect]
     Active Substance: PREDNISONE
     Indication: IMMUNOSUPPRESSANT DRUG THERAPY
     Dosage: 10 MILLIGRAM DAILY; PREDNISONE 10MG DAILY
     Route: 065
  2. TACROLIMUS. [Suspect]
     Active Substance: TACROLIMUS
     Dosage: TACROLIMUS GOAL TROUGH 3?4 NG/ML
     Route: 065
  3. TACROLIMUS. [Suspect]
     Active Substance: TACROLIMUS
     Indication: IMMUNOSUPPRESSANT DRUG THERAPY
     Dosage: TACROLIMUS GOAL TROUGH 6?8 NG/ML
     Route: 065
  4. TACROLIMUS. [Suspect]
     Active Substance: TACROLIMUS
     Dosage: TACROLIMUS GOAL TROUGH 4 NG/ML
     Route: 065
  5. MYCOPHENOLATE MOFETIL. [Suspect]
     Active Substance: MYCOPHENOLATE MOFETIL
     Dosage: 500 MILLIGRAM DAILY; MYCOPHENOLATE MOFETIL WAS REDUCED TO 250MG BID
     Route: 065
  6. ANTI?THYMOCYTE GLOBULIN [Concomitant]
     Active Substance: THYMOCYTE IMMUNE GLOBULIN NOS
     Indication: PRODUCT USED FOR UNKNOWN INDICATION
     Route: 065
  7. MYCOPHENOLATE MOFETIL. [Suspect]
     Active Substance: MYCOPHENOLATE MOFETIL
     Indication: IMMUNOSUPPRESSANT DRUG THERAPY
     Dosage: 1000 MILLIGRAM DAILY; MYCOPHENOLATE MOFETIL 500MG BID
     Route: 065
  8. PREDNISONE. [Suspect]
     Active Substance: PREDNISONE
     Dosage: PREDNISONE WAS REDUCED TO 5MG PER DAY
     Route: 065

REACTIONS (8)
  - Pneumocystis jirovecii pneumonia [Unknown]
  - Cytomegalovirus viraemia [Unknown]
  - Peritonitis [Unknown]
  - Pancytopenia [Unknown]
  - Cytomegalovirus colitis [Unknown]
  - Parvovirus infection [Unknown]
  - Bronchopulmonary aspergillosis [Unknown]
  - Disseminated varicella zoster virus infection [Unknown]
